FAERS Safety Report 4576663-7 (Version None)
Quarter: 2005Q1

REPORT INFORMATION
  Report Type: 
  Country: None (occurrence: None)
  Receive Date: 20050127
  Receipt Date: 20041007
  Transmission Date: 20050727
  Serious: No
  Sender: FDA-Public Use
  Company Number: USA041080496

PATIENT
  Age: 30 Year
  Sex: Female
  Weight: 73 kg

DRUGS (2)
  1. STRATTERA [Suspect]
     Indication: ATTENTION DEFICIT/HYPERACTIVITY DISORDER
     Dosage: 60 MG/2 DAY
  2. MAXALT (RIZATRIPTAN) [Concomitant]

REACTIONS (1)
  - PRESCRIBED OVERDOSE [None]
